FAERS Safety Report 10143225 (Version 2)
Quarter: 2014Q2

REPORT INFORMATION
  Report Type: Report from Study
  Country: US (occurrence: US)
  Receive Date: 20140430
  Receipt Date: 20140508
  Transmission Date: 20141212
  Serious: Yes (Other)
  Sender: FDA-Public Use
  Company Number: US-PURDUE-USA-2014-0113275

PATIENT
  Age: 42 Year
  Sex: Female
  Weight: 68.27 kg

DRUGS (3)
  1. OXY CR TAB [Suspect]
     Indication: SPINAL PAIN
     Dosage: 20 MG, Q12H
     Dates: start: 201401
  2. OXY CR TAB [Suspect]
     Indication: PAIN IN EXTREMITY
     Dosage: 20 MG, Q8H
     Route: 048
     Dates: start: 201403
  3. PREDNISONE [Suspect]
     Indication: PRODUCT USED FOR UNKNOWN INDICATION
     Dosage: 700 MG, WEEKLY
     Dates: start: 201308, end: 201403

REACTIONS (7)
  - Gastric bypass [Unknown]
  - Pain in extremity [Unknown]
  - Back pain [Unknown]
  - Hernia [Unknown]
  - Drug effect decreased [Unknown]
  - Product solubility abnormal [Unknown]
  - Drug ineffective [Unknown]
